FAERS Safety Report 10480906 (Version 1)
Quarter: 2014Q3

REPORT INFORMATION
  Report Type: Spontaneous
  Country: US (occurrence: US)
  Receive Date: 20140929
  Receipt Date: 20140929
  Transmission Date: 20150326
  Serious: No
  Sender: FDA-Public Use
  Company Number: US-PFIZER INC-2014263638

PATIENT
  Sex: Female

DRUGS (7)
  1. NEOMYCIN SULFATE. [Suspect]
     Active Substance: NEOMYCIN SULFATE
     Dosage: UNK
  2. LISINOPRIL. [Suspect]
     Active Substance: LISINOPRIL
     Dosage: UNK
  3. DOXYCYCLINE HYCLATE. [Suspect]
     Active Substance: DOXYCYCLINE HYCLATE
     Dosage: UNK
  4. TETRACYCLINE HCL [Suspect]
     Active Substance: TETRACYCLINE HYDROCHLORIDE
     Dosage: UNK
  5. LOSARTAN [Suspect]
     Active Substance: LOSARTAN
     Dosage: UNK
  6. HYDROCODONE [Suspect]
     Active Substance: HYDROCODONE
     Dosage: UNK
  7. GUAIFENESIN. [Suspect]
     Active Substance: GUAIFENESIN
     Dosage: UNK

REACTIONS (1)
  - Drug hypersensitivity [Unknown]
